FAERS Safety Report 8575168 (Version 2)
Quarter: 2014Q1

REPORT INFORMATION
  Report Type: Spontaneous
  Country: US (occurrence: None)
  Receive Date: 20120323
  Receipt Date: 20130305
  Transmission Date: 20141002
  Serious: Yes (Other)
  Sender: FDA-Public Use
  Company Number: 163-21880-11041456

PATIENT
  Age: 78 Year
  Sex: Female

DRUGS (6)
  1. REVLIMID [Suspect]
     Indication: PLASMA CELL MYELOMA
     Dosage: 15 MG, DAILY X 21 DAYS EVERY 28 DAYS, PO
     Route: 048
     Dates: start: 20101021
  2. DEXAMETHASONE [Concomitant]
  3. SYNTHROID [Concomitant]
  4. SYNTHROID [Concomitant]
  5. VITAMIN D (ERGOCALCIFEROL)(UNKNOWN) [Concomitant]
  6. VITAMIN B12 (CYANOCOBALAMIN)(UNKNOWN) [Concomitant]

REACTIONS (5)
  - Sinusitis [None]
  - Cough [None]
  - Nasal congestion [None]
  - Neutrophil count decreased [None]
  - Upper respiratory tract infection [None]
